FAERS Safety Report 6713044-1 (Version None)
Quarter: 2010Q2

REPORT INFORMATION
  Report Type: 
  Country: None (occurrence: None)
  Receive Date: 20100506
  Receipt Date: 20100427
  Transmission Date: 20101027
  Serious: Yes (Other)
  Sender: FDA-Public Use
  Company Number: CA-ASTRAZENECA-2010SE19043

PATIENT
  Age: 19 Year
  Sex: Male

DRUGS (1)
  1. BUPIVACAINE HYDROCHLORIDE W/EPINEPHRINE [Suspect]
     Indication: POSTOPERATIVE ANALGESIA
     Dosage: HIGH VOLUME PUMP: 275 ML WITH 5ML/H
     Route: 014

REACTIONS (1)
  - CHONDROLYSIS [None]
